FAERS Safety Report 20394321 (Version 1)
Quarter: 2022Q1

REPORT INFORMATION
  Report Type: Spontaneous
  Country: US (occurrence: US)
  Receive Date: 20220129
  Receipt Date: 20220129
  Transmission Date: 20220423
  Serious: Yes (Hospitalization, Other)
  Sender: FDA-Public Use
  Company Number: US-MLMSERVICE-20220113-3310307-1

PATIENT
  Age: 55 Year
  Sex: Female
  Weight: 52.2 kg

DRUGS (22)
  1. CLONAZEPAM [Suspect]
     Active Substance: CLONAZEPAM
     Indication: Product used for unknown indication
  2. ERTAPENEM [Suspect]
     Active Substance: ERTAPENEM
     Indication: Pathogen resistance
     Dosage: ERTAPENEM 1 G FOR ONE DOSE
  3. BACLOFEN [Suspect]
     Active Substance: BACLOFEN
     Indication: Product used for unknown indication
  4. ALPRAZOLAM [Suspect]
     Active Substance: ALPRAZOLAM
     Indication: Product used for unknown indication
  5. MEROPENEM [Suspect]
     Active Substance: MEROPENEM
     Indication: Pathogen resistance
     Dosage: 2 DOSES OF MEROPENEM AT 10 AND 16 HOURS AFTER PRESENTATION TO THE ED
  6. DALFAMPRIDINE [Concomitant]
     Active Substance: DALFAMPRIDINE
  7. OCRELIZUMAB [Concomitant]
     Active Substance: OCRELIZUMAB
  8. VITAMIN E [Concomitant]
     Active Substance: .ALPHA.-TOCOPHEROL
  9. DESMOPRESSIN [Concomitant]
     Active Substance: DESMOPRESSIN
  10. LUBIPROSTONE [Concomitant]
     Active Substance: LUBIPROSTONE
  11. ESCITALOPRAM [Concomitant]
     Active Substance: ESCITALOPRAM OXALATE
  12. ONDANSETRON [Concomitant]
     Active Substance: ONDANSETRON
  13. OXYBUTYNIN [Concomitant]
     Active Substance: OXYBUTYNIN
  14. MEMANTINE [Concomitant]
     Active Substance: MEMANTINE
  15. BUPROPION [Concomitant]
     Active Substance: BUPROPION
  16. ASCORBIC ACID [Concomitant]
     Active Substance: ASCORBIC ACID
  17. TRAZODONE [Concomitant]
     Active Substance: TRAZODONE HYDROCHLORIDE
  18. ACETAMINOPHEN\HYDROCODONE BITARTRATE [Concomitant]
     Active Substance: ACETAMINOPHEN\HYDROCODONE BITARTRATE
  19. CEPHALEXIN [Concomitant]
     Active Substance: CEPHALEXIN
  20. MODAFINIL [Concomitant]
     Active Substance: MODAFINIL
  21. GABAPENTIN [Concomitant]
     Active Substance: GABAPENTIN
  22. CHOLECALCIFEROL [Concomitant]
     Active Substance: CHOLECALCIFEROL

REACTIONS (6)
  - Neurotoxicity [Recovered/Resolved]
  - Muscle spasticity [Recovered/Resolved]
  - Withdrawal syndrome [Recovered/Resolved]
  - Depressed level of consciousness [Recovered/Resolved]
  - Dysphagia [Recovered/Resolved]
  - Encephalopathy [Recovered/Resolved]
